FAERS Safety Report 11720857 (Version 3)
Quarter: 2015Q4

REPORT INFORMATION
  Report Type: Spontaneous
  Country: US (occurrence: US)
  Receive Date: 20151110
  Receipt Date: 20151228
  Transmission Date: 20160304
  Serious: No
  Sender: FDA-Public Use
  Company Number: US-PFIZER INC-2015381461

PATIENT
  Age: 76 Year
  Sex: Female

DRUGS (2)
  1. PREMARIN [Suspect]
     Active Substance: ESTROGENS, CONJUGATED
     Indication: ATROPHIC VULVOVAGINITIS
     Dosage: 0.5 MG, FOR 7 NIGHTS, THEN 2-3 NIGHTS PER WEEK
     Route: 067
  2. PREMARIN [Suspect]
     Active Substance: ESTROGENS, CONJUGATED
     Dosage: 0.5 G, UNK (2-3 NIGHTS/ WEEK)
     Route: 067
     Dates: start: 20150925

REACTIONS (2)
  - Drug hypersensitivity [Unknown]
  - Vulvovaginal burning sensation [Recovered/Resolved]
